FAERS Safety Report 19468140 (Version 2)
Quarter: 2021Q3

REPORT INFORMATION
  Report Type: Spontaneous
  Country: BE (occurrence: BE)
  Receive Date: 20210628
  Receipt Date: 20210709
  Transmission Date: 20211014
  Serious: Yes (Hospitalization)
  Sender: FDA-Public Use
  Company Number: BE-TEVA-2021-BE-1927336

PATIENT
  Age: 12 Year
  Sex: Male

DRUGS (5)
  1. QUETIAPINE. [Suspect]
     Active Substance: QUETIAPINE
     Indication: BEHAVIOUR DISORDER
     Dosage: 800 MILLIGRAM DAILY; PROLONGED RELEASE; INITIAL DOSE UNKNOWN; DOSE GRADUALLY TITRATED TO 800 MG/DAY
     Route: 065
  2. PIPAMPERONE [Concomitant]
     Active Substance: PIPAMPERONE
     Indication: BEHAVIOUR DISORDER
  3. ARIPIPRAZOLE. [Suspect]
     Active Substance: ARIPIPRAZOLE
     Indication: BEHAVIOUR DISORDER
     Route: 065
  4. RISPERIDONE. [Concomitant]
     Active Substance: RISPERIDONE
     Indication: BEHAVIOUR DISORDER
  5. METHYLPHENIDATE. [Concomitant]
     Active Substance: METHYLPHENIDATE
     Indication: ATTENTION DEFICIT HYPERACTIVITY DISORDER

REACTIONS (3)
  - Tardive dyskinesia [Recovering/Resolving]
  - Anxiety [Recovering/Resolving]
  - Loss of personal independence in daily activities [Recovering/Resolving]
